FAERS Safety Report 4666652-6 (Version None)
Quarter: 2005Q2

REPORT INFORMATION
  Report Type: 
  Country: None (occurrence: None)
  Receive Date: 20050518
  Receipt Date: 20050505
  Transmission Date: 20051028
  Serious: Yes (Other)
  Sender: FDA-Public Use
  Company Number: HQWYE596409MAY05

PATIENT
  Age: 65 Year
  Sex: Female
  Weight: 49.94 kg

DRUGS (3)
  1. PREMARIN [Suspect]
     Indication: HORMONE REPLACEMENT THERAPY
     Dosage: 0.625 MG DAILY, ORAL
     Route: 048
     Dates: start: 19790101
  2. PREMARIN [Suspect]
     Indication: HYSTERECTOMY
     Dosage: 0.625 MG DAILY, ORAL
     Route: 048
     Dates: start: 19790101
  3. ATENOLOL [Concomitant]

REACTIONS (1)
  - POLYCYTHAEMIA [None]
